FAERS Safety Report 5326827-X (Version None)
Quarter: 2007Q2

REPORT INFORMATION
  Report Type: 
  Country: None (occurrence: None)
  Receive Date: 20070516
  Receipt Date: 20070509
  Transmission Date: 20071010
  Serious: Yes (Other)
  Sender: FDA-Public Use
  Company Number: JP-MERCK-0705USA02259

PATIENT
  Age: 74 Year

DRUGS (5)
  1. FOSAMAX [Suspect]
     Indication: OSTEOPOROSIS
     Route: 048
     Dates: start: 20060418
  2. ONEALFA [Concomitant]
     Route: 048
  3. FLUITRAN [Concomitant]
     Route: 048
     Dates: start: 20051107
  4. OLMETEC [Concomitant]
     Route: 048
     Dates: start: 20050704
  5. ADALAT [Concomitant]
     Route: 048
     Dates: start: 20060607

REACTIONS (1)
  - OSTEONECROSIS [None]
